FAERS Safety Report 6584983-X (Version None)
Quarter: 2010Q1

REPORT INFORMATION
  Report Type: 
  Country: None (occurrence: None)
  Receive Date: 20100217
  Receipt Date: 20100204
  Transmission Date: 20100710
  Serious: Yes (Hospitalization)
  Sender: FDA-Public Use
  Company Number: FR-ELI_LILLY_AND_COMPANY-FR201002001562

PATIENT
  Age: 43 Year
  Sex: Male

DRUGS (9)
  1. ZYPREXA [Suspect]
     Indication: PSYCHOTIC DISORDER
     Dosage: 20 MG, DAILY (1/D)
     Route: 048
     Dates: start: 20090606, end: 20090714
  2. HALDOL [Concomitant]
     Indication: PSYCHOTIC DISORDER
     Route: 030
     Dates: start: 20090624, end: 20090702
  3. HALDOL DECANOAS [Concomitant]
     Route: 030
     Dates: start: 20090706, end: 20090706
  4. LARGACTIL [Concomitant]
     Indication: PSYCHOTIC DISORDER
     Dosage: 400 MG, DAILY (1/D)
     Route: 048
     Dates: start: 20090622, end: 20090706
  5. PARKINANE [Concomitant]
     Route: 048
     Dates: start: 20090623, end: 20090805
  6. LEPTICUR [Concomitant]
     Route: 048
     Dates: start: 20090706, end: 20090901
  7. SERESTA [Concomitant]
     Dates: start: 20090623
  8. IMOVANE [Concomitant]
     Dates: start: 20090724, end: 20090907
  9. THERALENE [Concomitant]
     Route: 048
     Dates: start: 20090730, end: 20090805

REACTIONS (6)
  - ABDOMINAL PAIN [None]
  - CHOLESTASIS [None]
  - CHOLESTATIC LIVER INJURY [None]
  - HEPATIC ENZYME INCREASED [None]
  - JAUNDICE [None]
  - TRANSAMINASES INCREASED [None]
